FAERS Safety Report 20326535 (Version 7)
Quarter: 2023Q1

REPORT INFORMATION
  Report Type: Report from Study
  Country: IT (occurrence: None)
  Receive Date: 20220112
  Receipt Date: 20230210
  Transmission Date: 20230418
  Serious: Yes (Hospitalization)
  Sender: FDA-Public Use
  Company Number: IT-ROCHE-2994030

PATIENT
  Age: 70 Year
  Sex: Male
  Weight: 91.2 kg

DRUGS (26)
  1. GLOFITAMAB [Suspect]
     Active Substance: GLOFITAMAB
     Indication: Diffuse large B-cell lymphoma
     Dosage: ON 22/DEC/2021, THE PATIENT RECEIVED  MOST RECENT DOSE (30 MG) OF GLOFITAMAB PRIOR TO AE ONSET
     Route: 042
     Dates: start: 20211209
  2. OBINUTUZUMAB [Suspect]
     Active Substance: OBINUTUZUMAB
     Indication: Diffuse large B-cell lymphoma
     Dosage: ON 02/DEC/2021, THE PATIENT RECEIVED MOST RECENT DOSE OF OBINUTUZUMAB (1000 MG) PRIOR TO AE ONSET.?T
     Route: 042
     Dates: start: 20211202
  3. POLATUZUMAB VEDOTIN [Suspect]
     Active Substance: POLATUZUMAB VEDOTIN
     Indication: Diffuse large B-cell lymphoma
     Dosage: DOSE LAST STUDY DRUG ADMIN PRIOR AE/SAE WAS 165.60 MG?ON 22/DEC/2021, THE PATIENT RECEIVED MOST RECE
     Route: 042
     Dates: start: 20211203
  4. FILGRASTIM [Concomitant]
     Active Substance: FILGRASTIM
     Indication: Hypophosphataemia
     Dates: start: 20211217, end: 20211217
  5. FILGRASTIM [Concomitant]
     Active Substance: FILGRASTIM
     Indication: Neutropenia
     Dates: start: 20211214, end: 20211214
  6. METHYLPREDNISOLONE [Concomitant]
     Active Substance: METHYLPREDNISOLONE
     Route: 041
     Dates: start: 20211202, end: 20211202
  7. DEXAMETHASONE [Concomitant]
     Active Substance: DEXAMETHASONE
     Route: 042
     Dates: start: 20211216, end: 20211216
  8. DEXAMETHASONE [Concomitant]
     Active Substance: DEXAMETHASONE
     Route: 042
     Dates: start: 20211209, end: 20211209
  9. DEXAMETHASONE [Concomitant]
     Active Substance: DEXAMETHASONE
     Route: 042
     Dates: start: 20211222, end: 20211222
  10. ACETAMINOPHEN [Concomitant]
     Active Substance: ACETAMINOPHEN
     Route: 048
     Dates: start: 20211203, end: 20211203
  11. ACETAMINOPHEN [Concomitant]
     Active Substance: ACETAMINOPHEN
     Route: 048
     Dates: start: 20211216, end: 20211216
  12. ACETAMINOPHEN [Concomitant]
     Active Substance: ACETAMINOPHEN
     Route: 048
     Dates: start: 20211202, end: 20211202
  13. ACETAMINOPHEN [Concomitant]
     Active Substance: ACETAMINOPHEN
     Route: 048
     Dates: start: 20211222, end: 20211222
  14. ACETAMINOPHEN [Concomitant]
     Active Substance: ACETAMINOPHEN
     Route: 048
     Dates: start: 20211209, end: 20211209
  15. CHLORPHENIRAMINE MALEATE [Concomitant]
     Active Substance: CHLORPHENIRAMINE MALEATE
     Route: 042
     Dates: start: 20211203, end: 20211203
  16. CHLORPHENIRAMINE MALEATE [Concomitant]
     Active Substance: CHLORPHENIRAMINE MALEATE
     Route: 041
     Dates: start: 20211202, end: 20211202
  17. CHLORPHENIRAMINE MALEATE [Concomitant]
     Active Substance: CHLORPHENIRAMINE MALEATE
     Route: 042
     Dates: start: 20211222, end: 20211222
  18. CHLORPHENIRAMINE MALEATE [Concomitant]
     Active Substance: CHLORPHENIRAMINE MALEATE
     Route: 042
     Dates: start: 20211216, end: 20211216
  19. CHLORPHENIRAMINE MALEATE [Concomitant]
     Active Substance: CHLORPHENIRAMINE MALEATE
     Route: 042
     Dates: start: 20211209, end: 20211209
  20. ALLOPURINOL [Concomitant]
     Active Substance: ALLOPURINOL
  21. ACYCLOVIR [Concomitant]
     Active Substance: ACYCLOVIR
     Indication: Viral infection
  22. BACTRIM [Concomitant]
     Active Substance: SULFAMETHOXAZOLE\TRIMETHOPRIM
  23. ENOXAPARIN SODIUM [Concomitant]
     Active Substance: ENOXAPARIN SODIUM
     Indication: Thrombosis
     Dosage: 4000 U/L
  24. PANTOPRAZOLE [Concomitant]
     Active Substance: PANTOPRAZOLE
     Indication: Gastrointestinal disorder prophylaxis
     Dates: start: 20211207
  25. GRANULOCYTE COLONY-STIMULATING FACTOR NOS [Concomitant]
     Active Substance: GRANULOCYTE COLONY-STIMULATING FACTOR NOS
     Indication: Neutropenia
     Dates: start: 20211214, end: 20211214
  26. POTASSIUM PHOSPHATE [Concomitant]
     Active Substance: POTASSIUM PHOSPHATE
     Indication: Hypophosphataemia
     Dates: start: 20211217, end: 20211217

REACTIONS (1)
  - Klebsiella bacteraemia [Recovered/Resolved]

NARRATIVE: CASE EVENT DATE: 20211229
